FAERS Safety Report 9928306 (Version 1)
Quarter: 2014Q1

REPORT INFORMATION
  Report Type: Spontaneous
  Country: US (occurrence: None)
  Receive Date: 20140226
  Receipt Date: 20140226
  Transmission Date: 20141002
  Serious: Yes (Other)
  Sender: FDA-Public Use
  Company Number: None

PATIENT
  Age: 58 Year
  Sex: Female
  Weight: 102.06 kg

DRUGS (1)
  1. VICTOZA [Suspect]
     Indication: TYPE 2 DIABETES MELLITUS
     Dosage: ONCE A DAY ONCE DAILY INJECTION SUBCUTANEOUS DAILY
     Route: 058
     Dates: start: 20140120, end: 20140205

REACTIONS (11)
  - Abdominal pain upper [None]
  - Headache [None]
  - Nausea [None]
  - Dizziness [None]
  - Flank pain [None]
  - Malaise [None]
  - Vomiting [None]
  - Pain [None]
  - Dehydration [None]
  - Pancreatitis [None]
  - Gastrointestinal inflammation [None]
